FAERS Safety Report 8761561 (Version 6)
Quarter: 2013Q2

REPORT INFORMATION
  Report Type: Spontaneous
  Country: US (occurrence: None)
  Receive Date: 20120821
  Receipt Date: 20130506
  Transmission Date: 20140414
  Serious: Yes (Hospitalization, Other)
  Sender: FDA-Public Use
  Company Number: ADR-2012-01512

PATIENT
  Age: 57 Year
  Sex: Male

DRUGS (1)
  1. LIORESAL INTRATHECAL (BACLOFEN INJECTION) [Suspect]
     Indication: MUSCLE SPASTICITY
     Dosage: 210.4 MCG/DAY; SEE B5

REACTIONS (8)
  - Asthenia [None]
  - Overdose [None]
  - Dysstasia [None]
  - Crying [None]
  - Feeling abnormal [None]
  - Device battery issue [None]
  - Multiple sclerosis [None]
  - Condition aggravated [None]
